FAERS Safety Report 4505025-3 (Version None)
Quarter: 2004Q4

REPORT INFORMATION
  Report Type: 
  Country: None (occurrence: None)
  Receive Date: 20041116
  Receipt Date: 20041102
  Transmission Date: 20050328
  Serious: Yes (Hospitalization)
  Sender: FDA-Public Use
  Company Number: 2004SE06150

PATIENT
  Age: 32 Year
  Sex: Female

DRUGS (6)
  1. QUETIAPINE [Suspect]
     Indication: SCHIZOPHRENIA
     Dosage: 800 MG DAILY PO
     Route: 048
     Dates: start: 20031108, end: 20040805
  2. QUETIAPINE [Suspect]
     Indication: SCHIZOPHRENIA
     Dosage: 1000 MG DAILY PO
     Route: 048
     Dates: start: 20040806, end: 20040810
  3. QUETIAPINE [Suspect]
     Indication: SCHIZOPHRENIA
     Dosage: 1200 MG DAILY PO
     Route: 048
     Dates: start: 20040811, end: 20040811
  4. QUETIAPINE [Suspect]
     Indication: SCHIZOPHRENIA
     Dosage: 1400 MG DAILY PO
     Route: 048
     Dates: start: 20040812, end: 20040812
  5. QUETIAPINE [Suspect]
     Indication: SCHIZOPHRENIA
     Dosage: 1600 MG DAILY PO
     Route: 048
     Dates: start: 20040813, end: 20040914
  6. QUETIAPINE [Suspect]
     Indication: SCHIZOPHRENIA
     Dosage: 1200 MG DAILY PO
     Route: 048
     Dates: start: 20040915

REACTIONS (2)
  - CONDITION AGGRAVATED [None]
  - SCHIZOPHRENIA [None]
